FAERS Safety Report 4964968-7 (Version None)
Quarter: 2006Q2

REPORT INFORMATION
  Report Type: 
  Country: None (occurrence: None)
  Receive Date: 20060403
  Receipt Date: 20060320
  Transmission Date: 20061013
  Serious: Yes (Hospitalization)
  Sender: FDA-Public Use
  Company Number: SUS1-2005-00960

PATIENT
  Age: 31 Year
  Sex: Male

DRUGS (4)
  1. PENTASA [Suspect]
     Indication: COLITIS ULCERATIVE
     Dosage: SEE IMAGE
     Dates: start: 20021020, end: 20030312
  2. PENTASA [Suspect]
     Indication: COLITIS ULCERATIVE
     Dosage: SEE IMAGE
     Dates: start: 20041201, end: 20050629
  3. PENTASA [Suspect]
     Indication: COLITIS ULCERATIVE
     Dosage: SEE IMAGE
     Dates: start: 20051116, end: 20051215
  4. PREDNISOLONE [Concomitant]

REACTIONS (2)
  - AZOOSPERMIA [None]
  - HEPATIC FUNCTION ABNORMAL [None]
